FAERS Safety Report 8271532-3 (Version None)
Quarter: 2012Q2

REPORT INFORMATION
  Report Type: 
  Country: None (occurrence: None)
  Receive Date: 20120410
  Receipt Date: 20120330
  Transmission Date: 20120825
  Serious: Yes (Hospitalization, Disabling, Other)
  Sender: FDA-Public Use
  Company Number: US-PFIZER INC-HQWYE097926OCT04

PATIENT
  Sex: Female
  Weight: 71 kg

DRUGS (5)
  1. PREMPRO [Suspect]
     Indication: HORMONE REPLACEMENT THERAPY
     Dosage: 0.625/2.5 MG DAILY UNK
     Route: 048
     Dates: start: 19950601, end: 19960601
  2. PROVERA [Suspect]
     Indication: HORMONE REPLACEMENT THERAPY
     Dosage: 2.5 MG, DAILY  UNK
     Route: 048
     Dates: start: 19921101, end: 19950601
  3. LOZOL [Concomitant]
     Indication: HYPERTENSION
     Dosage: 2.5 MG, UNK
     Dates: start: 19920101, end: 20020101
  4. PREMARIN [Suspect]
     Indication: HORMONE REPLACEMENT THERAPY
     Dosage: 0.9 MG, DAILY UNK
     Route: 048
     Dates: start: 19921101, end: 19950301
  5. PREMARIN [Suspect]
     Dosage: 0.625 MG, UNK
     Route: 048
     Dates: start: 19950301, end: 19950601

REACTIONS (1)
  - BREAST CANCER FEMALE [None]
